FAERS Safety Report 26023114 (Version 3)
Quarter: 2025Q4

REPORT INFORMATION
  Report Type: Spontaneous
  Country: JP (occurrence: JP)
  Receive Date: 20251110
  Receipt Date: 20251205
  Transmission Date: 20260117
  Serious: Yes (Other)
  Sender: GENMAB
  Company Number: JP-GENMAB-2025-03454

PATIENT
  Age: 74 Year
  Sex: Male

DRUGS (9)
  1. EPKINLY [Suspect]
     Active Substance: EPCORITAMAB-BYSP
     Indication: Diffuse large B-cell lymphoma refractory
     Dosage: 0.16 MILLIGRAM, SINGLE, THE FIRST ADMINISTRATION IN CYCLE 1
     Route: 058
     Dates: start: 20250303, end: 20250303
  2. EPKINLY [Suspect]
     Active Substance: EPCORITAMAB-BYSP
     Dosage: 0.8 MILLIGRAM, SINGLE, THE SECOND ADMINISTRATION IN CYCLE 1
     Route: 058
     Dates: start: 20250312, end: 20250312
  3. EPKINLY [Suspect]
     Active Substance: EPCORITAMAB-BYSP
     Dosage: 48 MILLIGRAM, WEEKLY, THE THIRD, FOURTH ADMINISTRATION IN CYCLE 1 AND THE FIRST ADMINISTRATION IN CY
     Route: 058
     Dates: start: 20250319, end: 20250402
  4. EPKINLY [Suspect]
     Active Substance: EPCORITAMAB-BYSP
     Dosage: 48 MILLIGRAM, REUSE, THE SECOND ADMINISTRATION IN CYCLE 2
     Route: 058
     Dates: start: 20250425, end: 2025
  5. GANCICLOVIR [Suspect]
     Active Substance: GANCICLOVIR
     Dosage: UNK
  6. DEXAMETHASONE [Concomitant]
     Active Substance: DEXAMETHASONE
     Indication: Prophylaxis
     Dosage: 10 MILLIGRAM, ON DAY 1, DAY 2, DAY 3, AND DAY 4 OF ADMINISTRATION OF EPKINLY, FROM THE FIRST TO THE
     Dates: start: 20250303, end: 20250329
  7. DIPHENHYDRAMINE HYDROCHLORIDE [Concomitant]
     Active Substance: DIPHENHYDRAMINE HYDROCHLORIDE
     Indication: Prophylaxis
     Dosage: UNK, ON DAY 1 OF ADMINISTRATION OF EPKINLY, FROM THE FIRST TO THE FOURTH ADMINISTRATION IN CYCLE 1
     Dates: start: 20250303, end: 20250326
  8. CALONAL [Concomitant]
     Active Substance: ACETAMINOPHEN
     Indication: Prophylaxis
     Dosage: UNK, ON DAY 1 OF ADMINISTRATION OF EPKINLY, FROM THE FIRST TO THE FOURTH ADMINISTRATION IN CYCLE 1
     Dates: start: 20250303, end: 20250326
  9. AMINO ACIDS\DEXTROSE\ELECTROLYTES NOS\MINERALS\VITAMINS [Concomitant]
     Active Substance: AMINO ACIDS\DEXTROSE\ELECTROLYTES NOS\MINERALS\VITAMINS
     Indication: Prophylaxis
     Dosage: 500 ML, FROM THE FIRST TO THE FOURTH ADMINISTRATION IN CYCLE 1
     Dates: start: 20250303, end: 20250326

REACTIONS (3)
  - Myelosuppression [Recovered/Resolved]
  - Cytokine release syndrome [Recovered/Resolved]
  - Cytokine release syndrome [Recovered/Resolved]

NARRATIVE: CASE EVENT DATE: 20250310
